FAERS Safety Report 9713647 (Version 2)
Quarter: 2013Q4

REPORT INFORMATION
  Report Type: Spontaneous
  Country: US (occurrence: US)
  Receive Date: 20131126
  Receipt Date: 20131211
  Transmission Date: 20140711
  Serious: No
  Sender: FDA-Public Use
  Company Number: US-VERTEX PHARMACEUTICALS INC-2013-011375

PATIENT
  Age: 46 Year
  Sex: Male
  Weight: 72.56 kg

DRUGS (4)
  1. INCIVEK [Suspect]
     Indication: HEPATITIS C
     Dosage: 750 MG, TID
     Route: 048
     Dates: start: 20131120
  2. RIBAVIRIN [Suspect]
     Indication: HEPATITIS C
     Dosage: 2 DF, BID
     Route: 048
     Dates: start: 20131120
  3. RIBAVIRIN [Suspect]
     Dosage: 3 DF, BID
     Route: 048
  4. PEGASYS [Suspect]
     Indication: HEPATITIS C
     Dosage: 180 ?G, QW
     Route: 058
     Dates: start: 20131120

REACTIONS (4)
  - Dysphonia [Not Recovered/Not Resolved]
  - Decreased appetite [Unknown]
  - Cough [Not Recovered/Not Resolved]
  - Rash [Not Recovered/Not Resolved]
